FAERS Safety Report 6069213-X (Version None)
Quarter: 2009Q1

REPORT INFORMATION
  Report Type: 
  Country: None (occurrence: None)
  Receive Date: 20090121
  Receipt Date: 20080228
  Transmission Date: 20090719
  Serious: Yes (Other)
  Sender: FDA-Public Use
  Company Number: HQWYE737803AUG04

PATIENT
  Age: 50 Year
  Sex: Female

DRUGS (7)
  1. PREMPRO [Suspect]
  2. CLIMARA [Suspect]
  3. ESTRADIOL [Suspect]
  4. PROMETRIUM [Suspect]
  5. TESTOSTERONE [Suspect]
  6. VAGIFEM [Suspect]
  7. VIVELLE [Suspect]

REACTIONS (1)
  - DEEP VEIN THROMBOSIS [None]
